FAERS Safety Report 18608450 (Version 1)
Quarter: 2020Q4

REPORT INFORMATION
  Report Type: Spontaneous
  Country: US (occurrence: US)
  Receive Date: 20201212
  Receipt Date: 20201212
  Transmission Date: 20210114
  Serious: No
  Sender: FDA-Public Use
  Company Number: US-009507513-2012USA001614

PATIENT
  Age: 78 Year
  Sex: Female

DRUGS (3)
  1. LEVAQUIN [Concomitant]
     Active Substance: LEVOFLOXACIN
  2. JANUVIA [Suspect]
     Active Substance: SITAGLIPTIN PHOSPHATE
     Indication: DIABETES MELLITUS
     Dosage: UNK
     Route: 048
  3. CIPRO [Concomitant]
     Active Substance: CIPROFLOXACIN HYDROCHLORIDE

REACTIONS (3)
  - Adverse event [Unknown]
  - Blood disorder [Unknown]
  - Therapy change [Unknown]

NARRATIVE: CASE EVENT DATE: 20201102
